FAERS Safety Report 5787780-8 (Version None)
Quarter: 2008Q2

REPORT INFORMATION
  Report Type: 
  Country: None (occurrence: None)
  Receive Date: 20080625
  Receipt Date: 20080611
  Transmission Date: 20081010
  Serious: Yes (Other)
  Sender: FDA-Public Use
  Company Number: PHHY2008JP10613

PATIENT
  Age: 9 Year
  Sex: Female

DRUGS (2)
  1. CYCLOSPORINE [Suspect]
     Indication: NEPHROTIC SYNDROME
  2. PREDNISOLONE [Suspect]
     Indication: NEPHROTIC SYNDROME
     Route: 048

REACTIONS (5)
  - DISEASE RECURRENCE [None]
  - FAILURE TO THRIVE [None]
  - NEPHROPATHY [None]
  - OSTEOPOROSIS [None]
  - THROMBOTIC CEREBRAL INFARCTION [None]
